FAERS Safety Report 13711140 (Version 1)
Quarter: 2017Q3

REPORT INFORMATION
  Report Type: Spontaneous
  Country: US (occurrence: US)
  Receive Date: 20170703
  Receipt Date: 20170703
  Transmission Date: 20171127
  Serious: Yes (Hospitalization)
  Sender: FDA-Public Use
  Company Number: None

PATIENT
  Age: 75 Year
  Sex: Female
  Weight: 91.71 kg

DRUGS (21)
  1. MESYLATE [Concomitant]
  2. CEVIMELINE HCL [Concomitant]
     Active Substance: CEVIMELINE HYDROCHLORIDE
  3. GABAPENTIN. [Concomitant]
     Active Substance: GABAPENTIN
  4. DOXAZOSIN [Concomitant]
     Active Substance: DOXAZOSIN\DOXAZOSIN MESYLATE
  5. ENBREL [Concomitant]
     Active Substance: ETANERCEPT
  6. PROTONIX [Concomitant]
     Active Substance: PANTOPRAZOLE SODIUM
  7. METHOTREXATE. [Concomitant]
     Active Substance: METHOTREXATE
  8. VITAMINS [Concomitant]
     Active Substance: VITAMINS
  9. PROBIOTIC [Concomitant]
     Active Substance: PROBIOTICS NOS
  10. FOLIC ACID. [Concomitant]
     Active Substance: FOLIC ACID
  11. NORTRIPTYLINE [Concomitant]
     Active Substance: NORTRIPTYLINE
  12. VITAMIN D3 [Concomitant]
     Active Substance: CHOLECALCIFEROL
  13. VITAMIN B12 [Concomitant]
     Active Substance: CYANOCOBALAMIN
  14. TURMERIC [Concomitant]
     Active Substance: HERBALS\TURMERIC
  15. TYLENOL [Concomitant]
     Active Substance: ACETAMINOPHEN
  16. MYRBETRIQ [Suspect]
     Active Substance: MIRABEGRON
     Indication: URINARY INCONTINENCE
     Dates: end: 20170505
  17. MEGA RED KRILL OIL [Concomitant]
  18. TRAMADOL. [Concomitant]
     Active Substance: TRAMADOL
  19. LOSARTIN [Concomitant]
     Active Substance: LOSARTAN
  20. ULORIC ACID [Concomitant]
  21. WARFARIN [Concomitant]
     Active Substance: WARFARIN

REACTIONS (2)
  - Constipation [None]
  - Intestinal obstruction [None]

NARRATIVE: CASE EVENT DATE: 20170505
